FAERS Safety Report 7128681-2 (Version None)
Quarter: 2010Q4

REPORT INFORMATION
  Report Type: 
  Country: None (occurrence: None)
  Receive Date: 20101130
  Receipt Date: 20101118
  Transmission Date: 20110411
  Serious: Yes (Hospitalization)
  Sender: FDA-Public Use
  Company Number: JP-ROCHE-735245

PATIENT
  Age: 60 Year
  Sex: Female

DRUGS (5)
  1. AVASTIN [Suspect]
     Indication: COLON CANCER METASTATIC
     Dosage: NOTE: DOSAGE IS UNCERTAIN.
     Route: 041
     Dates: start: 20100301
  2. 5-FU [Suspect]
     Indication: COLON CANCER METASTATIC
     Dosage: NOTE: DOSAGE IN UNCERTAIN
     Route: 041
     Dates: start: 20100301
  3. 5-FU [Suspect]
     Dosage: NOTE: DOSAGE IS UNCERTAIN
     Route: 040
     Dates: start: 20100301
  4. ELPLAT [Concomitant]
     Dosage: NOTE: DOSAGE IS UNCERTAIN.
     Route: 041
     Dates: start: 20100301
  5. LEVOFOLINATE [Concomitant]
     Dosage: NOTE: DOSAGE IS UNCERTAIN.
     Route: 041
     Dates: start: 20100301

REACTIONS (5)
  - ALTERED STATE OF CONSCIOUSNESS [None]
  - DECREASED APPETITE [None]
  - HYPERAMMONAEMIA [None]
  - NAUSEA [None]
  - RESTLESSNESS [None]
